FAERS Safety Report 11415868 (Version 2)
Quarter: 2015Q3

REPORT INFORMATION
  Report Type: Spontaneous
  Country: JP (occurrence: JP)
  Receive Date: 20150825
  Receipt Date: 20150908
  Transmission Date: 20151125
  Serious: Yes (Hospitalization, Other)
  Sender: FDA-Public Use
  Company Number: JP-GLAXOSMITHKLINE-JP2015JPN104564

PATIENT
  Age: 59 Year
  Sex: Male
  Weight: 61 kg

DRUGS (4)
  1. LAMICTAL [Suspect]
     Active Substance: LAMOTRIGINE
     Dosage: 75 MG, 1D
     Route: 048
     Dates: start: 20150623, end: 20150703
  2. LAMICTAL [Suspect]
     Active Substance: LAMOTRIGINE
     Indication: EPILEPSY
     Dosage: 25 MG, 1D
     Route: 048
     Dates: start: 20150529, end: 20150608
  3. LAMICTAL [Suspect]
     Active Substance: LAMOTRIGINE
     Dosage: 50 MG, QD
     Route: 048
     Dates: start: 20150609, end: 20150622
  4. DEPAKENE [Suspect]
     Active Substance: VALPROIC ACID
     Dosage: 400 MG, BID
     Route: 048
     Dates: start: 20120314, end: 20150709

REACTIONS (16)
  - Eyelid erosion [Recovering/Resolving]
  - Lip erosion [Recovering/Resolving]
  - Lymphocytic infiltration [Unknown]
  - White blood cell count decreased [Unknown]
  - Overdose [Unknown]
  - Epidermal necrosis [Unknown]
  - Skin tightness [Not Recovered/Not Resolved]
  - Toxic epidermal necrolysis [Recovering/Resolving]
  - Erythema [Recovering/Resolving]
  - Skin exfoliation [Unknown]
  - Insomnia [Unknown]
  - Skin necrosis [Unknown]
  - Generalised erythema [Recovering/Resolving]
  - Vulvar erosion [Recovering/Resolving]
  - Rash [Recovering/Resolving]
  - Pruritus generalised [Recovering/Resolving]

NARRATIVE: CASE EVENT DATE: 20150703
